FAERS Safety Report 12115393 (Version 1)
Quarter: 2016Q1

REPORT INFORMATION
  Report Type: Spontaneous
  Country: VE (occurrence: VE)
  Receive Date: 20160225
  Receipt Date: 20160225
  Transmission Date: 20160526
  Serious: Yes (Other)
  Sender: FDA-Public Use
  Company Number: VE-BAYER-2016-022922

PATIENT
  Sex: Male
  Weight: 2.4 kg

DRUGS (1)
  1. BETAFERON [Suspect]
     Active Substance: INTERFERON BETA-1B
     Route: 064

REACTIONS (3)
  - Premature baby [None]
  - Maternal exposure during pregnancy [None]
  - Low birth weight baby [None]

NARRATIVE: CASE EVENT DATE: 201508
